FAERS Safety Report 23742097 (Version 1)
Quarter: 2024Q2

REPORT INFORMATION
  Report Type: Spontaneous
  Country: US (occurrence: None)
  Receive Date: 20240413
  Receipt Date: 20240413
  Transmission Date: 20240716
  Serious: No
  Sender: FDA-Public Use
  Company Number: None

PATIENT
  Age: 63 Year
  Sex: Female

DRUGS (2)
  1. BORTEZOMIB [Suspect]
     Active Substance: BORTEZOMIB
     Indication: Retroperitoneal cancer
     Dosage: OTHER FREQUENCY : DAYS1,4,8,11Q21DAY;?
     Route: 058
     Dates: start: 202403
  2. LENALIDOMIDE [Concomitant]

REACTIONS (3)
  - Sepsis [None]
  - Febrile neutropenia [None]
  - Pseudomonal bacteraemia [None]

NARRATIVE: CASE EVENT DATE: 20240403
